FAERS Safety Report 10313574 (Version 3)
Quarter: 2014Q3

REPORT INFORMATION
  Report Type: Spontaneous
  Country: JP (occurrence: JP)
  Receive Date: 20140718
  Receipt Date: 20140723
  Transmission Date: 20150326
  Serious: Yes (Death, Hospitalization, Other)
  Sender: FDA-Public Use
  Company Number: JP-ROCHE-1419982

PATIENT
  Age: 30 Year
  Sex: Female
  Weight: 50 kg

DRUGS (7)
  1. FERON [Concomitant]
     Active Substance: INTERFERON BETA
     Indication: GLIOBLASTOMA
     Route: 041
     Dates: start: 20140327, end: 20140424
  2. CEFTRIAXONE SODIUM. [Suspect]
     Active Substance: CEFTRIAXONE SODIUM
     Indication: OSTEOMYELITIS
     Route: 042
     Dates: start: 20140428, end: 20140507
  3. KEPPRA [Concomitant]
     Active Substance: LEVETIRACETAM
     Indication: PROPHYLAXIS
     Route: 048
     Dates: start: 20130114, end: 20140628
  4. TAKEPRON [Concomitant]
     Active Substance: LANSOPRAZOLE
     Indication: PROPHYLAXIS
     Route: 048
     Dates: start: 20140313, end: 20140628
  5. TEMODAL [Concomitant]
     Active Substance: TEMOZOLOMIDE
     Indication: GLIOBLASTOMA
     Route: 048
     Dates: start: 20140327, end: 20140427
  6. AVASTIN [Suspect]
     Active Substance: BEVACIZUMAB
     Indication: GLIOBLASTOMA
     Route: 041
     Dates: start: 20140410, end: 20140529
  7. DECADRON [Concomitant]
     Active Substance: DEXAMETHASONE
     Indication: CEREBRAL OEDEMA MANAGEMENT
     Route: 048
     Dates: start: 20140313, end: 20140628

REACTIONS (4)
  - Glioblastoma [Fatal]
  - Wound dehiscence [Recovered/Resolved]
  - Meningitis [Recovered/Resolved]
  - Bone marrow failure [Recovering/Resolving]

NARRATIVE: CASE EVENT DATE: 20140427
